FAERS Safety Report 25381078 (Version 1)
Quarter: 2025Q2

REPORT INFORMATION
  Report Type: Spontaneous
  Country: NL (occurrence: NL)
  Receive Date: 20250530
  Receipt Date: 20250530
  Transmission Date: 20250716
  Serious: Yes (Death)
  Sender: EISAI
  Company Number: NL-Eisai-EC-2025-190234

PATIENT
  Sex: Male

DRUGS (2)
  1. LENVATINIB [Suspect]
     Active Substance: LENVATINIB
     Indication: Papillary renal cell carcinoma
  2. PEMBROLIZUMAB [Concomitant]
     Active Substance: PEMBROLIZUMAB
     Indication: Papillary renal cell carcinoma

REACTIONS (1)
  - Nephritis [Fatal]
